FAERS Safety Report 17690306 (Version 1)
Quarter: 2020Q2

REPORT INFORMATION
  Report Type: Report from Study
  Country: MX (occurrence: MX)
  Receive Date: 20200421
  Receipt Date: 20200421
  Transmission Date: 20200714
  Serious: Yes (Other)
  Sender: FDA-Public Use
  Company Number: NVSC2020MX105938

PATIENT
  Sex: Female
  Weight: 34 kg

DRUGS (2)
  1. TRILEPTAL [Suspect]
     Active Substance: OXCARBAZEPINE
     Indication: FOCAL DYSCOGNITIVE SEIZURES
     Dosage: 1 (60 MG/1 ML OF SUSPENSION OF 100 ML)
     Route: 048
  2. TRILEPTAL [Suspect]
     Active Substance: OXCARBAZEPINE
     Dosage: 1 (60 MG/1 ML OF SUSPENSION OF 100 ML)UNK
     Route: 048

REACTIONS (2)
  - Seizure [Unknown]
  - Off label use [Unknown]
